FAERS Safety Report 12328058 (Version 3)
Quarter: 2016Q2

REPORT INFORMATION
  Report Type: Spontaneous
  Country: US (occurrence: US)
  Receive Date: 20160503
  Receipt Date: 20160603
  Transmission Date: 20160815
  Serious: Yes (Disabling, Other)
  Sender: FDA-Public Use
  Company Number: US-009507513-1604USA017822

PATIENT
  Age: 41 Year
  Sex: Female
  Weight: 88 kg

DRUGS (1)
  1. BELSOMRA [Suspect]
     Active Substance: SUVOREXANT
     Indication: INSOMNIA
     Dosage: 10 MG, QPM
     Route: 048
     Dates: start: 20160304, end: 20160311

REACTIONS (6)
  - Memory impairment [Recovering/Resolving]
  - Fibula fracture [Recovering/Resolving]
  - Tibia fracture [Recovering/Resolving]
  - Fracture displacement [Recovering/Resolving]
  - Fall [Recovering/Resolving]
  - Wrong technique in product usage process [Unknown]

NARRATIVE: CASE EVENT DATE: 20160304
